FAERS Safety Report 19029282 (Version 2)
Quarter: 2024Q2

REPORT INFORMATION
  Report Type: Spontaneous
  Country: US (occurrence: US)
  Receive Date: 20210318
  Receipt Date: 20240625
  Transmission Date: 20240716
  Serious: No
  Sender: FDA-Public Use
  Company Number: US-SANOFI-00495746

PATIENT
  Age: 40 Year
  Sex: Male

DRUGS (1)
  1. MULTAQ [Suspect]
     Active Substance: DRONEDARONE
     Indication: Atrial fibrillation
     Dosage: DRUG STRUCTURE DOSAGE : 400 MG DRUG INTERVAL DOSAGE : BID DRUG TREATMENT DURATION: SEE NARRATIVE
     Route: 065

REACTIONS (1)
  - No adverse event [Unknown]
